FAERS Safety Report 6600467-4 (Version None)
Quarter: 2010Q1

REPORT INFORMATION
  Report Type: 
  Country: None (occurrence: None)
  Receive Date: 20100223
  Receipt Date: 20100223
  Transmission Date: 20100710
  Serious: Yes (Hospitalization)
  Sender: FDA-Public Use
  Company Number: None

PATIENT
  Age: 77 Year
  Sex: Male
  Weight: 93 kg

DRUGS (1)
  1. SIMVASTATIN [Suspect]
     Dosage: 80 MG EVERY DAY PO
     Route: 048
     Dates: start: 19970828, end: 20090214

REACTIONS (2)
  - HEPATIC ENZYME INCREASED [None]
  - RHABDOMYOLYSIS [None]
